FAERS Safety Report 13833075 (Version 1)
Quarter: 2017Q3

REPORT INFORMATION
  Report Type: Spontaneous
  Country: US (occurrence: US)
  Receive Date: 20170803
  Receipt Date: 20170803
  Transmission Date: 20171127
  Serious: No
  Sender: FDA-Public Use
  Company Number: None

PATIENT
  Sex: Female
  Weight: 85.5 kg

DRUGS (7)
  1. METOPROLOL. [Concomitant]
     Active Substance: METOPROLOL
  2. HYDROCODONE/ACETAMINOPHEN 5-325 TB [Suspect]
     Active Substance: ACETAMINOPHEN\HYDROCODONE BITARTRATE
     Indication: MIGRAINE
     Dosage: QUANTITY:1 TABLET(S);?
     Route: 048
     Dates: start: 20170510, end: 20170609
  3. LORAZAPAM [Concomitant]
     Active Substance: LORAZEPAM
  4. IMITREX [Concomitant]
     Active Substance: SUMATRIPTAN SUCCINATE
  5. NORTRIPTLYNE [Concomitant]
  6. VICODEN [Concomitant]
  7. GABAPENTIN. [Concomitant]
     Active Substance: GABAPENTIN

REACTIONS (3)
  - Impaired quality of life [None]
  - Drug ineffective [None]
  - Product substitution issue [None]
